FAERS Safety Report 10033161 (Version 1)
Quarter: 2014Q1

REPORT INFORMATION
  Report Type: Spontaneous
  Country: CZ (occurrence: CZ)
  Receive Date: 20140324
  Receipt Date: 20140324
  Transmission Date: 20141002
  Serious: Yes (Other)
  Sender: FDA-Public Use
  Company Number: CZ-WATSON-2014-05513

PATIENT
  Sex: Female

DRUGS (2)
  1. SODIUM VALPROATE (UNKNOWN) [Suspect]
     Indication: GRAND MAL CONVULSION
     Dosage: 1 G, DAILY
     Route: 065
     Dates: start: 2009
  2. TOPIRAMATE [Concomitant]
     Indication: GRAND MAL CONVULSION
     Dosage: UNK, DOSE REDUCTION
     Route: 065

REACTIONS (2)
  - Alopecia [Unknown]
  - Weight increased [Unknown]
